FAERS Safety Report 18591254 (Version 1)
Quarter: 2020Q4

REPORT INFORMATION
  Report Type: Spontaneous
  Country: CN (occurrence: CN)
  Receive Date: 20201208
  Receipt Date: 20201208
  Transmission Date: 20210114
  Serious: Yes (Hospitalization, Other)
  Sender: FDA-Public Use
  Company Number: CN-PFIZER INC-2020479791

PATIENT
  Age: 16 Year
  Sex: Male

DRUGS (1)
  1. METHYLPREDNISOLONE SODIUM SUCCINATE. [Suspect]
     Active Substance: METHYLPREDNISOLONE SODIUM SUCCINATE
     Indication: ENCEPHALITIS AUTOIMMUNE
     Dosage: 1000 MG, 1X/DAY
     Route: 041
     Dates: start: 20201024, end: 20201106

REACTIONS (2)
  - Coagulopathy [Recovering/Resolving]
  - Activated partial thromboplastin time shortened [Recovering/Resolving]

NARRATIVE: CASE EVENT DATE: 20201028
